FAERS Safety Report 26156077 (Version 1)
Quarter: 2025Q4

REPORT INFORMATION
  Report Type: Spontaneous
  Country: CH (occurrence: CH)
  Receive Date: 20251215
  Receipt Date: 20251215
  Transmission Date: 20260117
  Serious: Yes (Life-Threatening, Hospitalization, Other)
  Sender: PANACEA BIOTEC PHARMA LIMITED
  Company Number: CH-PBT-011161

PATIENT
  Age: 42 Year
  Sex: Female

DRUGS (7)
  1. TACROLIMUS [Suspect]
     Active Substance: TACROLIMUS
     Indication: Placental disorder
     Dosage: TROUGH LEVELS 6-8 NG/ML
     Route: 048
  2. PREDNISONE [Suspect]
     Active Substance: PREDNISONE
     Indication: Placental disorder
     Route: 048
  3. METHYLPREDNISOLONE [Suspect]
     Active Substance: METHYLPREDNISOLONE
     Indication: Placental disorder
     Dosage: 1 MG/KG IV BOLUS WITH EACH IVIG INFUSION
     Route: 042
  4. HUMAN IMMUNOGLOBULIN G [Suspect]
     Active Substance: HUMAN IMMUNOGLOBULIN G
     Indication: Placental disorder
     Dosage: 2G/KG
     Route: 042
  5. ASPIRIN [Suspect]
     Active Substance: ASPIRIN
     Indication: Placental disorder
     Route: 048
  6. HYDROXYCHLOROQUINE [Suspect]
     Active Substance: HYDROXYCHLOROQUINE
     Indication: Placental disorder
     Dosage: 5 MG/KG/DAY
     Route: 048
  7. HUMAN IMMUNOGLOBULIN G [Suspect]
     Active Substance: HUMAN IMMUNOGLOBULIN G
     Indication: Placental disorder
     Dosage: 2G/KG
     Route: 042

REACTIONS (4)
  - Gestational diabetes [Unknown]
  - Exposure during pregnancy [Unknown]
  - Product use in unapproved indication [Unknown]
  - Vasa praevia [Unknown]
